FAERS Safety Report 5675927-3 (Version None)
Quarter: 2008Q1

REPORT INFORMATION
  Report Type: 
  Country: None (occurrence: None)
  Receive Date: 20080321
  Receipt Date: 20080318
  Transmission Date: 20080703
  Serious: Yes (Other)
  Sender: FDA-Public Use
  Company Number: B0512964A

PATIENT
  Age: 5 Year
  Sex: Female

DRUGS (1)
  1. CLAVAMOX [Suspect]
     Indication: DRUG USE FOR UNKNOWN INDICATION
     Route: 048
     Dates: start: 20080305

REACTIONS (5)
  - ECZEMA [None]
  - HEPATIC ENZYME INCREASED [None]
  - PRURITUS [None]
  - SKIN EROSION [None]
  - SWELLING [None]
